FAERS Safety Report 6721865-4 (Version None)
Quarter: 2010Q2

REPORT INFORMATION
  Report Type: 
  Country: None (occurrence: None)
  Receive Date: 20100512
  Receipt Date: 20100429
  Transmission Date: 20101027
  Serious: Yes (Other)
  Sender: FDA-Public Use
  Company Number: PHHY2010FR27550

PATIENT
  Sex: Female

DRUGS (2)
  1. FEMARA [Suspect]
     Dosage: UNK
     Route: 048
     Dates: start: 20100201, end: 20100410
  2. KENZEN [Concomitant]
     Indication: CARDIOMYOPATHY

REACTIONS (3)
  - ARRHYTHMIA [None]
  - DYSPNOEA [None]
  - TACHYARRHYTHMIA [None]
